FAERS Safety Report 17348394 (Version 1)
Quarter: 2020Q1

REPORT INFORMATION
  Report Type: Report from Study
  Country: US (occurrence: US)
  Receive Date: 20200129
  Receipt Date: 20200129
  Transmission Date: 20200409
  Serious: No
  Sender: FDA-Public Use
  Company Number: US-EXELIXIS-CABO-19023979

PATIENT
  Age: 90 Year
  Sex: Female

DRUGS (8)
  1. ALPRAZOLAM. [Concomitant]
     Active Substance: ALPRAZOLAM
     Dosage: UNK
  2. VERAPAMIL [Concomitant]
     Active Substance: VERAPAMIL HYDROCHLORIDE
     Dosage: UNK
  3. CABOMETYX [Suspect]
     Active Substance: CABOZANTINIB S-MALATE
     Indication: RENAL CANCER
     Dosage: 20 MG, QD
     Route: 048
     Dates: start: 20180113
  4. ALLOPURINOL. [Concomitant]
     Active Substance: ALLOPURINOL
     Dosage: UNK
  5. FUROSEMIDE. [Concomitant]
     Active Substance: FUROSEMIDE
     Dosage: UNK
  6. METOPROLOL SUCCINATE. [Concomitant]
     Active Substance: METOPROLOL SUCCINATE
     Dosage: UNK
  7. CABOMETYX [Suspect]
     Active Substance: CABOZANTINIB S-MALATE
     Dosage: 20 MG, QD
     Route: 048
  8. LEVOTHYROXINE SODIUM. [Concomitant]
     Active Substance: LEVOTHYROXINE SODIUM
     Dosage: UNK

REACTIONS (7)
  - Nasal ulcer [Unknown]
  - Headache [Unknown]
  - Fatigue [Unknown]
  - Nasal crusting [Unknown]
  - Blood pressure increased [Unknown]
  - Decreased appetite [Unknown]
  - Vascular injury [Unknown]

NARRATIVE: CASE EVENT DATE: 201801
